FAERS Safety Report 23721852 (Version 3)
Quarter: 2024Q2

REPORT INFORMATION
  Report Type: Spontaneous
  Country: JP (occurrence: JP)
  Receive Date: 20240409
  Receipt Date: 20240424
  Transmission Date: 20240715
  Serious: Yes (Life-Threatening, Hospitalization, Other)
  Sender: FDA-Public Use
  Company Number: None

PATIENT

DRUGS (14)
  1. AMLODIPINE [Suspect]
     Active Substance: AMLODIPINE BESYLATE
     Indication: Product used for unknown indication
     Dosage: 190 MILLIGRAM, SINGLE, INGESTED
     Route: 048
  2. AMLODIPINE [Suspect]
     Active Substance: AMLODIPINE BESYLATE
     Route: 065
  3. OLMESARTAN MEDOXOMIL [Suspect]
     Active Substance: OLMESARTAN MEDOXOMIL
     Indication: Product used for unknown indication
     Dosage: 550 MILLIGRAM, SINGLE, INGESTED
     Route: 048
  4. OLMESARTAN MEDOXOMIL [Suspect]
     Active Substance: OLMESARTAN MEDOXOMIL
     Route: 065
  5. TELMISARTAN [Suspect]
     Active Substance: TELMISARTAN
     Indication: Product used for unknown indication
     Dosage: 1520 MILLIGRAM, SINGLE, INGESTED
     Route: 048
  6. TELMISARTAN [Suspect]
     Active Substance: TELMISARTAN
     Route: 065
  7. VILDAGLIPTIN [Suspect]
     Active Substance: VILDAGLIPTIN
     Indication: Product used for unknown indication
     Dosage: 7000 MILLIGRAM, SINGLE, INGESTED
     Route: 048
  8. VILDAGLIPTIN [Suspect]
     Active Substance: VILDAGLIPTIN
     Route: 065
  9. NIFEDIPINE [Suspect]
     Active Substance: NIFEDIPINE
     Indication: Product used for unknown indication
     Dosage: 2160 MILLIGRAM, SINGLE, INGESTED
     Route: 048
  10. NIFEDIPINE [Suspect]
     Active Substance: NIFEDIPINE
     Route: 065
  11. AZELNIDIPINE [Suspect]
     Active Substance: AZELNIDIPINE
     Indication: Product used for unknown indication
     Dosage: 440 MILLIGRAM, SINGLE, INGESTED
     Route: 048
  12. AZELNIDIPINE [Suspect]
     Active Substance: AZELNIDIPINE
     Route: 065
  13. ESAXERENONE [Suspect]
     Active Substance: ESAXERENONE
     Indication: Product used for unknown indication
     Dosage: 160 MILLIGRAM, SINGLE, INGESTED
     Route: 048
  14. ESAXERENONE [Suspect]
     Active Substance: ESAXERENONE
     Route: 065

REACTIONS (11)
  - Compartment syndrome [Recovering/Resolving]
  - Haemodynamic instability [Recovered/Resolved]
  - Intentional overdose [Recovering/Resolving]
  - Coma [Recovered/Resolved]
  - Shock [Recovered/Resolved]
  - Necrosis [Recovering/Resolving]
  - Acute kidney injury [Recovering/Resolving]
  - Angioedema [Recovering/Resolving]
  - Vomiting [Recovering/Resolving]
  - Hypotension [Recovering/Resolving]
  - Nausea [Recovering/Resolving]
